FAERS Safety Report 6271246-5 (Version None)
Quarter: 2009Q3

REPORT INFORMATION
  Report Type: 
  Country: None (occurrence: None)
  Receive Date: 20090717
  Receipt Date: 20090710
  Transmission Date: 20100115
  Serious: Yes (Other)
  Sender: FDA-Public Use
  Company Number: FR-JNJFOC-20080802619

PATIENT
  Sex: Female

DRUGS (4)
  1. EPITOMAX [Suspect]
     Indication: EPILEPSY
     Route: 048
  2. TEGRETOL [Suspect]
     Indication: EPILEPSY
     Route: 048
  3. LAMICTAL [Suspect]
     Indication: EPILEPSY
     Route: 048
  4. URBANYL [Suspect]
     Indication: EPILEPSY

REACTIONS (3)
  - DRUG EXPOSURE DURING PREGNANCY [None]
  - PREMATURE LABOUR [None]
  - PREMATURE RUPTURE OF MEMBRANES [None]
